FAERS Safety Report 19589507 (Version 2)
Quarter: 2021Q3

REPORT INFORMATION
  Report Type: Report from Study
  Country: IT (occurrence: IT)
  Receive Date: 20210721
  Receipt Date: 20210804
  Transmission Date: 20211014
  Serious: Yes (Other)
  Sender: FDA-Public Use
  Company Number: IT-PFIZER INC-2021847904

PATIENT
  Age: 88 Year
  Sex: Male

DRUGS (7)
  1. LANOXIN [Concomitant]
     Active Substance: DIGOXIN
  2. FUROSEMIDE [FUROSEMIDE SODIUM] [Concomitant]
     Active Substance: FUROSEMIDE SODIUM
  3. MEDROL [Suspect]
     Active Substance: METHYLPREDNISOLONE
     Indication: PAIN
  4. TORA?DOL [Suspect]
     Active Substance: KETOROLAC TROMETHAMINE
     Indication: PAIN
  5. COUMADIN [Suspect]
     Active Substance: WARFARIN SODIUM
     Route: 048
  6. MODURETIC 5?50 [Concomitant]
     Active Substance: AMILORIDE HYDROCHLORIDE\HYDROCHLOROTHIAZIDE
  7. RAMIPRIL DOC [Concomitant]

REACTIONS (5)
  - Drug abuse [Unknown]
  - Abdominal pain [Recovered/Resolved]
  - Syncope [Recovered/Resolved]
  - Gastric ulcer haemorrhage [Recovered/Resolved]
  - International normalised ratio abnormal [Recovered/Resolved]

NARRATIVE: CASE EVENT DATE: 20201022
